FAERS Safety Report 5400271-9 (Version None)
Quarter: 2007Q3

REPORT INFORMATION
  Report Type: 
  Country: None (occurrence: None)
  Receive Date: 20070730
  Receipt Date: 20070719
  Transmission Date: 20080115
  Serious: Yes (Hospitalization)
  Sender: FDA-Public Use
  Company Number: US-KINGPHARMUSA00001-K200700918

PATIENT

DRUGS (1)
  1. SONATA [Suspect]
     Dosage: 420 MG, 42 CAPSULES, SINGLE
     Route: 048
     Dates: start: 20070717, end: 20070717

REACTIONS (5)
  - DYSARTHRIA [None]
  - FATIGUE [None]
  - INTENTIONAL OVERDOSE [None]
  - SUICIDE ATTEMPT [None]
  - TACHYCARDIA [None]
